FAERS Safety Report 5011547-1 (Version None)
Quarter: 2006Q2

REPORT INFORMATION
  Report Type: 
  Country: None (occurrence: None)
  Receive Date: 20060524
  Receipt Date: 20060515
  Transmission Date: 20061013
  Serious: Yes (Hospitalization)
  Sender: FDA-Public Use
  Company Number: PL-2006-011999

PATIENT
  Age: 60 Year
  Sex: Female

DRUGS (1)
  1. ULTRAVIST 370 [Suspect]
     Indication: COMPUTERISED TOMOGRAM
     Dosage: 1 DOSE,
     Dates: start: 20060501, end: 20060501

REACTIONS (4)
  - BLOOD PRESSURE INCREASED [None]
  - GASTRIC DISORDER [None]
  - VERTIGO [None]
  - VOMITING [None]
